FAERS Safety Report 4417062-8 (Version None)
Quarter: 2004Q2

REPORT INFORMATION
  Report Type: 
  Country: None (occurrence: None)
  Receive Date: 20040629
  Receipt Date: 20031114
  Transmission Date: 20050107
  Serious: No
  Sender: FDA-Public Use
  Company Number: US057036

PATIENT
  Age: 29 Year
  Sex: Female
  Weight: 76.3 kg

DRUGS (8)
  1. ARANESP [Suspect]
     Indication: RENAL FAILURE CHRONIC
     Dosage: 40 MCG, WEEKLY, SC
     Route: 058
     Dates: start: 20031008, end: 20031105
  2. ALENDRONATE SODIUM [Concomitant]
  3. MYCOPHENOLATE MOFETIL [Concomitant]
  4. CHROMAGEN [Concomitant]
  5. PROCHLORPERAZINE EDISYLATE [Concomitant]
  6. PREDNISONE [Concomitant]
  7. LISINOPRIL [Concomitant]
  8. SODIUM BICARBONATE [Concomitant]

REACTIONS (1)
  - PAIN [None]
